FAERS Safety Report 15420338 (Version 4)
Quarter: 2019Q2

REPORT INFORMATION
  Report Type: Spontaneous
  Country: US (occurrence: US)
  Receive Date: 20180924
  Receipt Date: 20190527
  Transmission Date: 20190711
  Serious: No
  Sender: FDA-Public Use
  Company Number: US-SA-2018SA264624

PATIENT
  Age: 22 Year
  Sex: Male

DRUGS (20)
  1. CLONIDINE. [Concomitant]
     Active Substance: CLONIDINE
  2. EPIPEN [Concomitant]
     Active Substance: EPINEPHRINE
  3. PULMICORT TURBUHALER [Concomitant]
     Active Substance: BUDESONIDE
  4. CLOBETASOL [Concomitant]
     Active Substance: CLOBETASOL
  5. FOCALIN [DEXMETHYLPHENIDATE HYDROCHLORIDE] [Concomitant]
  6. HYDROLATUM [Concomitant]
     Active Substance: PETROLATUM
  7. DUPIXENT [Suspect]
     Active Substance: DUPILUMAB
     Indication: DERMATITIS ATOPIC
     Dosage: 300 MG, QOW
     Route: 058
     Dates: start: 20180817
  8. MUPIROCIN. [Concomitant]
     Active Substance: MUPIROCIN
  9. SELENIUM SULFIDE. [Concomitant]
     Active Substance: SELENIUM SULFIDE
  10. ADVAIR HFA [Concomitant]
     Active Substance: FLUTICASONE PROPIONATE\SALMETEROL XINAFOATE
  11. DUPIXENT [Suspect]
     Active Substance: DUPILUMAB
     Indication: ASTHMA
  12. ATARAX [Concomitant]
     Active Substance: HYDROXYZINE HYDROCHLORIDE
  13. BENADRYL [Concomitant]
     Active Substance: DIPHENHYDRAMINE HYDROCHLORIDE
  14. OXYCODONE [Concomitant]
     Active Substance: OXYCODONE
  15. PREDNISONE. [Concomitant]
     Active Substance: PREDNISONE
  16. SERTRALINE [Concomitant]
     Active Substance: SERTRALINE HYDROCHLORIDE
  17. QVAR [Concomitant]
     Active Substance: BECLOMETHASONE DIPROPIONATE
  18. ALBUTEROL [SALBUTAMOL] [Concomitant]
     Active Substance: ALBUTEROL
  19. GABAPENTIN. [Concomitant]
     Active Substance: GABAPENTIN
  20. OMEPRAZOLE. [Concomitant]
     Active Substance: OMEPRAZOLE

REACTIONS (4)
  - Product use issue [Unknown]
  - Product dose omission [Unknown]
  - Stomatitis [Not Recovered/Not Resolved]
  - Dermatitis [Not Recovered/Not Resolved]

NARRATIVE: CASE EVENT DATE: 20180919
